FAERS Safety Report 7458173-2 (Version None)
Quarter: 2011Q2

REPORT INFORMATION
  Report Type: 
  Country: None (occurrence: None)
  Receive Date: 20110504
  Receipt Date: 20110420
  Transmission Date: 20111010
  Serious: Yes (Hospitalization)
  Sender: FDA-Public Use
  Company Number: US-JNJFOC-20110300676

PATIENT
  Sex: Female

DRUGS (5)
  1. MTX [Concomitant]
     Indication: RHEUMATOID ARTHRITIS
  2. REMICADE [Suspect]
     Dosage: X 3 DOSES INDUCTION
     Route: 042
  3. PLAQUENIL [Concomitant]
     Indication: RHEUMATOID ARTHRITIS
  4. REMICADE [Suspect]
     Indication: RHEUMATOID ARTHRITIS
     Dosage: X 3 DOSES INDUCTION
     Route: 042
  5. REMICADE [Suspect]
     Dosage: X 3 DOSES INDUCTION
     Route: 042

REACTIONS (2)
  - RENAL FAILURE ACUTE [None]
  - URINARY TRACT INFECTION [None]
